FAERS Safety Report 7177119-8 (Version None)
Quarter: 2010Q4

REPORT INFORMATION
  Report Type: 
  Country: None (occurrence: None)
  Receive Date: 20101220
  Receipt Date: 20101216
  Transmission Date: 20110411
  Serious: Yes (Hospitalization)
  Sender: FDA-Public Use
  Company Number: IT-AMGEN-ITASP2010005088

PATIENT

DRUGS (2)
  1. ARANESP [Suspect]
     Indication: NEPHROGENIC ANAEMIA
     Dosage: 60 A?G, QWK
     Route: 058
     Dates: start: 20070901, end: 20101108
  2. PROGRAF [Concomitant]
     Indication: RENAL TRANSPLANT
     Dosage: 6 MG, UNK

REACTIONS (1)
  - APLASIA PURE RED CELL [None]
